FAERS Safety Report 6801643-8 (Version None)
Quarter: 2010Q2

REPORT INFORMATION
  Report Type: 
  Country: None (occurrence: None)
  Receive Date: 20100629
  Receipt Date: 20100621
  Transmission Date: 20101027
  Serious: Yes (Hospitalization)
  Sender: FDA-Public Use
  Company Number: CA-ASTRAZENECA-2010SE29290

PATIENT
  Age: 60 Year
  Sex: Male

DRUGS (8)
  1. SEROQUEL [Suspect]
     Route: 048
  2. ALTACE [Suspect]
     Route: 048
  3. ASPIRIN [Concomitant]
  4. ATIVAN [Concomitant]
  5. CLONAZEPAM [Concomitant]
  6. KEMADRIN [Concomitant]
  7. LIPITOR [Concomitant]
  8. METFORMIN HCL [Concomitant]

REACTIONS (6)
  - ABDOMINAL PAIN [None]
  - BENIGN PROSTATIC HYPERPLASIA [None]
  - BODY TEMPERATURE INCREASED [None]
  - HEART RATE INCREASED [None]
  - RESPIRATORY RATE INCREASED [None]
  - URINARY RETENTION [None]
